FAERS Safety Report 12457230 (Version 1)
Quarter: 2016Q2

REPORT INFORMATION
  Report Type: Spontaneous
  Country: DE (occurrence: DE)
  Receive Date: 20160610
  Receipt Date: 20160610
  Transmission Date: 20160815
  Serious: Yes (Hospitalization)
  Sender: FDA-Public Use
  Company Number: DE-TEVA-665382GER

PATIENT
  Age: 84 Year
  Sex: Male

DRUGS (15)
  1. DONEPEZIL. [Concomitant]
     Active Substance: DONEPEZIL
     Dosage: 10 MILLIGRAM DAILY;
     Route: 048
  2. MIRTAZAPIN [Suspect]
     Active Substance: MIRTAZAPINE
     Dosage: 15 MILLIGRAM DAILY;
     Route: 048
     Dates: start: 20141010, end: 20141012
  3. BISOPROLOL [Suspect]
     Active Substance: BISOPROLOL
     Dosage: 2.5 MILLIGRAM DAILY;
     Route: 048
     Dates: end: 20141015
  4. PIPAMPERON [Suspect]
     Active Substance: PIPAMPERONE HYDROCHLORIDE
     Route: 048
     Dates: start: 20141014
  5. AMIODARON [Concomitant]
     Active Substance: AMIODARONE
     Dosage: 200 MILLIGRAM DAILY;
     Route: 048
  6. MIRTAZAPIN [Suspect]
     Active Substance: MIRTAZAPINE
     Route: 048
     Dates: start: 20141015
  7. BISOPROLOL [Suspect]
     Active Substance: BISOPROLOL
     Dosage: 2.5 MILLIGRAM DAILY;
     Route: 048
     Dates: start: 20141025
  8. PIPAMPERON [Suspect]
     Active Substance: PIPAMPERONE HYDROCHLORIDE
     Route: 048
     Dates: start: 20141015
  9. MIRTAZAPIN [Suspect]
     Active Substance: MIRTAZAPINE
     Route: 048
     Dates: start: 20141016
  10. TORASEMID [Suspect]
     Active Substance: TORSEMIDE
     Dosage: 5 MILLIGRAM DAILY;
     Route: 048
     Dates: end: 20141015
  11. PIPAMPERON [Suspect]
     Active Substance: PIPAMPERONE HYDROCHLORIDE
     Route: 048
     Dates: start: 20141016
  12. BISOPROLOL [Suspect]
     Active Substance: BISOPROLOL
     Route: 048
     Dates: start: 20141016, end: 20141024
  13. MIRTAZAPIN [Suspect]
     Active Substance: MIRTAZAPINE
     Dosage: 7.5 MILLIGRAM DAILY;
     Route: 048
     Dates: start: 20141008, end: 20141009
  14. MIRTAZAPIN [Suspect]
     Active Substance: MIRTAZAPINE
     Dosage: 7.5 MILLIGRAM DAILY;
     Route: 048
     Dates: start: 20141013, end: 20141014
  15. ATORVASTATIN [Concomitant]
     Active Substance: ATORVASTATIN
     Dosage: FOR WEEKS
     Route: 048

REACTIONS (1)
  - Circulatory collapse [Recovered/Resolved]

NARRATIVE: CASE EVENT DATE: 20141015
